FAERS Safety Report 22325175 (Version 8)
Quarter: 2024Q1

REPORT INFORMATION
  Report Type: Spontaneous
  Country: US (occurrence: US)
  Receive Date: 20230516
  Receipt Date: 20240122
  Transmission Date: 20240409
  Serious: Yes (Other)
  Sender: FDA-Public Use
  Company Number: US-PFIZER INC-PV202300083681

PATIENT
  Age: 62 Year
  Sex: Female

DRUGS (3)
  1. IBRANCE [Suspect]
     Active Substance: PALBOCICLIB
     Dosage: 100 MG
  2. IBRANCE [Suspect]
     Active Substance: PALBOCICLIB
     Dosage: 75 MG
  3. FASLODEX [Concomitant]
     Active Substance: FULVESTRANT
     Dosage: UNK

REACTIONS (13)
  - Neutrophil count decreased [Unknown]
  - Nasopharyngitis [Unknown]
  - Abdominal discomfort [Recovering/Resolving]
  - Insomnia [Unknown]
  - Fatigue [Recovering/Resolving]
  - Full blood count decreased [Unknown]
  - Pruritus [Unknown]
  - Peripheral swelling [Unknown]
  - Joint swelling [Unknown]
  - White blood cell count decreased [Recovering/Resolving]
  - Alopecia [Unknown]
  - Nausea [Unknown]
  - Hot flush [Unknown]

NARRATIVE: CASE EVENT DATE: 20230516
